FAERS Safety Report 16829069 (Version 1)
Quarter: 2019Q3

REPORT INFORMATION
  Report Type: Spontaneous
  Country: PL (occurrence: PL)
  Receive Date: 20190919
  Receipt Date: 20190919
  Transmission Date: 20191005
  Serious: Yes (Hospitalization)
  Sender: FDA-Public Use
  Company Number: PL-MYLANLABS-2019M1086982

PATIENT
  Age: 96 Year
  Sex: Male

DRUGS (2)
  1. DONEPEZIL. [Suspect]
     Active Substance: DONEPEZIL
     Indication: DEPRESSION
     Dosage: UNK
  2. CITALOPRAM [Suspect]
     Active Substance: CITALOPRAM HYDROBROMIDE
     Indication: DEPRESSION
     Dosage: UNK

REACTIONS (4)
  - Electrocardiogram QT prolonged [Unknown]
  - Dizziness [Unknown]
  - Asthenia [Unknown]
  - Bradycardia [Unknown]
